FAERS Safety Report 5689688-5 (Version None)
Quarter: 2008Q1

REPORT INFORMATION
  Report Type: 
  Country: None (occurrence: None)
  Receive Date: 20080328
  Receipt Date: 20080314
  Transmission Date: 20080703
  Serious: Yes (Life-Threatening, Hospitalization)
  Sender: FDA-Public Use
  Company Number: 2008US000638

PATIENT
  Age: 25 Year
  Sex: Female
  Weight: 59.9 kg

DRUGS (2)
  1. AMEVIVE [Suspect]
     Indication: PSORIASIS
     Dosage: 15 MG, WEEKLY, INTRAMUSCULAR
     Route: 030
     Dates: start: 20050317, end: 20050602
  2. TRIAMCINOLONE CREAM (TRIAMCINOLONE) [Concomitant]

REACTIONS (10)
  - ABSCESS [None]
  - CERVICAL VERTEBRAL FRACTURE [None]
  - CHEST X-RAY ABNORMAL [None]
  - FACIAL BONES FRACTURE [None]
  - FRACTURED ZYGOMATIC ARCH ELEVATION [None]
  - LACERATION [None]
  - PNEUMOTHORAX [None]
  - RESPIRATORY RATE INCREASED [None]
  - ROAD TRAFFIC ACCIDENT [None]
  - WOUND NECROSIS [None]
